FAERS Safety Report 10185172 (Version 1)
Quarter: 2014Q2

REPORT INFORMATION
  Report Type: Spontaneous
  Country: BE (occurrence: BE)
  Receive Date: 20140521
  Receipt Date: 20140521
  Transmission Date: 20141212
  Serious: Yes (Other)
  Sender: FDA-Public Use
  Company Number: PHHY2014BE059301

PATIENT
  Age: 29 Year
  Sex: Male

DRUGS (12)
  1. CERTICAN [Suspect]
     Indication: RENAL TRANSPLANT
     Dosage: 0.75 MG, BID
     Dates: start: 20140116, end: 20140122
  2. CERTICAN [Suspect]
     Dosage: 1.25 MG, BID
     Dates: start: 20140123
  3. NEORAL [Concomitant]
     Indication: RENAL TRANSPLANT
     Dosage: 50 MG, BID
     Dates: end: 20140127
  4. COVERSYL                                /FRA/ [Concomitant]
     Dosage: 10 MG, QD
  5. EMCONCOR [Concomitant]
     Dosage: 5 MG, QD
  6. MEFENAX [Concomitant]
     Dosage: 1000 MG, BID
  7. PANTOMED//PANTOPRAZOLE SODIUM SESQUIHYDRATE [Concomitant]
     Dosage: 40 MG, QD
  8. PREDNISOLONE [Concomitant]
     Dosage: 5 MG, QD
  9. ZANIDIP [Concomitant]
     Dosage: 20 MG, QD
  10. SIMVASTATINE [Concomitant]
     Indication: HYPERCHOLESTEROLAEMIA
     Dosage: 20 MG, QD
     Dates: start: 20140424
  11. CREMICORT-H [Concomitant]
     Dosage: 20 G, IF NEEDED
  12. CREMICORT-H [Concomitant]
     Dosage: 10 MG/G, IF NEEDED

REACTIONS (13)
  - Iron deficiency anaemia [Unknown]
  - Red blood cell count decreased [Unknown]
  - Oedema peripheral [Unknown]
  - Peripheral swelling [Unknown]
  - Arterial bruit [Unknown]
  - Monocyte count increased [Unknown]
  - Eosinophil count increased [Unknown]
  - Neutrophil count decreased [Unknown]
  - Glomerular filtration rate decreased [Unknown]
  - Hypercalcaemia [Unknown]
  - Hypercholesterolaemia [Unknown]
  - Blood pressure systolic increased [Unknown]
  - Blood creatinine increased [Unknown]
